FAERS Safety Report 6300549-0 (Version None)
Quarter: 2009Q3

REPORT INFORMATION
  Report Type: 
  Country: None (occurrence: None)
  Receive Date: 20090806
  Receipt Date: 20090507
  Transmission Date: 20100115
  Serious: Yes (Other)
  Sender: FDA-Public Use
  Company Number: US-ABBOTT-09P-163-0564009-00

PATIENT
  Sex: Female
  Weight: 54.48 kg

DRUGS (7)
  1. DEPAKOTE ER [Suspect]
     Indication: GRAND MAL CONVULSION
     Route: 048
     Dates: start: 20090318, end: 20090320
  2. HYDROMORPHONE HCL [Concomitant]
     Indication: PAIN
  3. FOLIC ACID [Concomitant]
     Indication: MEDICAL DIET
  4. VITAMIN B-12 [Concomitant]
     Indication: MEDICAL DIET
  5. VITAMIN B6 [Concomitant]
     Indication: MEDICAL DIET
  6. LACTULOSE [Concomitant]
     Indication: HYPERAMMONAEMIA
  7. AMITRIPTYLINE HCL [Concomitant]
     Indication: DRUG USE FOR UNKNOWN INDICATION
     Route: 048

REACTIONS (1)
  - HYPERAMMONAEMIA [None]
